FAERS Safety Report 13755431 (Version 1)
Quarter: 2017Q3

REPORT INFORMATION
  Report Type: Spontaneous
  Country: JP (occurrence: JP)
  Receive Date: 20170714
  Receipt Date: 20170714
  Transmission Date: 20171127
  Serious: Yes (Other)
  Sender: FDA-Public Use
  Company Number: JP-DSJP-DSJ-2017-124326

PATIENT

DRUGS (3)
  1. OLMETEC [Suspect]
     Active Substance: OLMESARTAN MEDOXOMIL
     Indication: PRODUCT USED FOR UNKNOWN INDICATION
     Dosage: UNK
     Route: 065
  2. VFEND [Interacting]
     Active Substance: VORICONAZOLE
     Indication: ASPERGILLUS INFECTION
     Dosage: 360 MG, LOADING DOSE
     Route: 041
     Dates: start: 20170301, end: 20170301
  3. VFEND [Interacting]
     Active Substance: VORICONAZOLE
     Dosage: 200MG/DAY
     Route: 041
     Dates: start: 20170302, end: 20170307

REACTIONS (3)
  - Drug interaction [Unknown]
  - Renal impairment [Unknown]
  - Blood pressure decreased [Recovered/Resolved]

NARRATIVE: CASE EVENT DATE: 20170302
